FAERS Safety Report 11318794 (Version 2)
Quarter: 2015Q4

REPORT INFORMATION
  Report Type: Spontaneous
  Country: KR (occurrence: KR)
  Receive Date: 20150729
  Receipt Date: 20151119
  Transmission Date: 20160304
  Serious: Yes (Hospitalization)
  Sender: FDA-Public Use
  Company Number: KR-AMGEN-KORCT2015075835

PATIENT
  Age: 68 Year
  Sex: Male
  Weight: 64 kg

DRUGS (21)
  1. FLUCONAZOLE. [Concomitant]
     Active Substance: FLUCONAZOLE
     Dosage: 200 MG, UNK
     Route: 048
     Dates: start: 20150406
  2. PREDNISOLONE. [Concomitant]
     Active Substance: PREDNISOLONE
     Dosage: 100 MG, UNK
     Route: 048
     Dates: start: 20150406, end: 20150410
  3. APREPITANT. [Concomitant]
     Active Substance: APREPITANT
     Dosage: 125 MG, UNK
     Route: 048
     Dates: start: 20150406, end: 20150406
  4. G-LASTA [Suspect]
     Active Substance: PEGFILGRASTIM
     Indication: FEBRILE NEUTROPENIA
     Dosage: 6 MG, 1X/3WEEKS
     Route: 058
     Dates: start: 20150407, end: 20150407
  5. ESOMEPRAZOLE [Concomitant]
     Active Substance: ESOMEPRAZOLE
     Dosage: 20 MG, UNK
     Route: 048
     Dates: start: 20140919
  6. MOSAPRIDE CITRATE [Concomitant]
     Active Substance: MOSAPRIDE CITRATE
     Dosage: 15 MG, UNK
     Route: 048
     Dates: start: 20150315
  7. GRANISETRON [Concomitant]
     Active Substance: GRANISETRON
     Dosage: 1PACK
     Route: 061
     Dates: start: 20150405, end: 20150601
  8. APREPITANT. [Concomitant]
     Active Substance: APREPITANT
     Dosage: 80 MG, UNK
     Route: 048
     Dates: start: 20150407, end: 20150709
  9. GABAPENTIN. [Concomitant]
     Active Substance: GABAPENTIN
     Dosage: 300 MG, UNK
     Route: 048
     Dates: start: 20150403
  10. METOCLOPRAMIDE. [Concomitant]
     Active Substance: METOCLOPRAMIDE
     Dosage: 5 MG, UNK
     Route: 048
     Dates: start: 20150414, end: 20150422
  11. VINCRISTINE [Concomitant]
     Active Substance: VINCRISTINE
     Dosage: 2 MG, UNK
     Route: 042
     Dates: start: 20150406, end: 20150406
  12. DOXORUBICIN [Concomitant]
     Active Substance: DOXORUBICIN
     Dosage: 85 MG, UNK
     Route: 042
     Dates: start: 20150406, end: 20150406
  13. CODAEWON [Concomitant]
     Dosage: 6TAB
     Route: 048
     Dates: start: 20150414, end: 20150421
  14. ASPIRIN (E.C.) [Concomitant]
     Active Substance: ASPIRIN
     Dosage: 100 MG, UNK
     Route: 048
     Dates: start: 20150414, end: 20150422
  15. ACTIFED [Concomitant]
     Active Substance: PSEUDOEPHEDRINE HYDROCHLORIDE\TRIPROLIDINE HYDROCHLORIDE
     Dosage: 2TAB
     Route: 048
     Dates: start: 20150406, end: 20150413
  16. CYCLOPHOSPHAMIDE. [Concomitant]
     Active Substance: CYCLOPHOSPHAMIDE
     Dosage: 1275 MG, UNK
     Route: 042
     Dates: start: 20150406, end: 20150406
  17. COTRIMOXAZOLE [Concomitant]
     Active Substance: SULFAMETHOXAZOLE\TRIMETHOPRIM
     Dosage: 1TAB
     Route: 048
     Dates: start: 20150406
  18. CODAEWON [Concomitant]
     Dosage: 1TAB
     Route: 048
     Dates: start: 20150406, end: 20150413
  19. ZOLPIDEM TARTRATE. [Concomitant]
     Active Substance: ZOLPIDEM TARTRATE
     Dosage: 5 MG, UNK
     Route: 048
     Dates: start: 20150401, end: 20150423
  20. AMBROXOL [Concomitant]
     Active Substance: AMBROXOL
     Dosage: 90 MG, UNK
     Route: 048
     Dates: start: 20150414
  21. TNA PERI [Concomitant]
     Dosage: 1680 ML, UNK
     Route: 042
     Dates: start: 20150414, end: 20150416

REACTIONS (2)
  - Pneumonia [Recovered/Resolved]
  - Febrile neutropenia [Recovered/Resolved]

NARRATIVE: CASE EVENT DATE: 20150414
